FAERS Safety Report 11655113 (Version 4)
Quarter: 2015Q4

REPORT INFORMATION
  Report Type: Spontaneous
  Country: US (occurrence: US)
  Receive Date: 20151023
  Receipt Date: 20151109
  Transmission Date: 20160304
  Serious: Yes (Disabling)
  Sender: FDA-Public Use
  Company Number: US-009507513-1510USA010192

PATIENT
  Sex: Female

DRUGS (2)
  1. BELSOMRA [Suspect]
     Active Substance: SUVOREXANT
     Dosage: 10 MG, UNK
     Route: 048
     Dates: start: 201510, end: 201510
  2. BELSOMRA [Suspect]
     Active Substance: SUVOREXANT
     Indication: INSOMNIA
     Dosage: 20 MG, TWO NIGHTS IN A ROW
     Route: 048
     Dates: start: 201510, end: 201510

REACTIONS (11)
  - Vomiting [Not Recovered/Not Resolved]
  - Memory impairment [Unknown]
  - Decubitus ulcer [Unknown]
  - Tremor [Unknown]
  - Feeling abnormal [Unknown]
  - Headache [Unknown]
  - Anger [Unknown]
  - Bedridden [Unknown]
  - Fatigue [Unknown]
  - Drug ineffective [Unknown]
  - Irritability [Unknown]

NARRATIVE: CASE EVENT DATE: 2015
